FAERS Safety Report 7232686-0 (Version None)
Quarter: 2011Q1

REPORT INFORMATION
  Report Type: 
  Country: None (occurrence: None)
  Receive Date: 20110119
  Receipt Date: 20110111
  Transmission Date: 20110831
  Serious: Yes (Hospitalization)
  Sender: FDA-Public Use
  Company Number: JP-BRISTOL-MYERS SQUIBB COMPANY-15442973

PATIENT
  Age: 71 Year
  Sex: Male
  Weight: 78 kg

DRUGS (9)
  1. ETHYL P-PIPERIDINOACETYLAMINOBENZOATE [Concomitant]
     Route: 048
     Dates: start: 20101001
  2. CETUXIMAB [Suspect]
     Indication: GASTROOESOPHAGEAL CANCER
     Dosage: RECENT INF:5DEC2010 NO OF INF:6 STRENGTH:5MG/ML
     Route: 042
     Dates: start: 20101028
  3. XELODA [Suspect]
     Indication: GASTROOESOPHAGEAL CANCER
     Dosage: ON DAY 1-15 FORMULATION:TABS
     Route: 048
  4. SULPIRIDE [Concomitant]
     Route: 048
     Dates: start: 20101001
  5. CISPLATIN [Suspect]
     Indication: GASTROOESOPHAGEAL CANCER
     Dosage: RECENT INF:18NOV10 ON DAY 1 OF CYCLE
     Route: 042
     Dates: start: 20101028
  6. TEPRENONE [Concomitant]
     Route: 048
     Dates: start: 20101001
  7. OLMESARTAN MEDOXOMIL [Concomitant]
     Route: 048
     Dates: start: 19960101
  8. RABEPRAZOLE SODIUM [Concomitant]
     Route: 048
     Dates: start: 20101001
  9. CALBLOCK [Concomitant]
     Route: 048
     Dates: start: 19960101

REACTIONS (1)
  - INTERSTITIAL LUNG DISEASE [None]
